FAERS Safety Report 9617611 (Version 2)
Quarter: 2013Q4

REPORT INFORMATION
  Report Type: Report from Study
  Country: JP (occurrence: JP)
  Receive Date: 20131011
  Receipt Date: 20131011
  Transmission Date: 20140711
  Serious: Yes (Hospitalization)
  Sender: FDA-Public Use
  Company Number: JP-ABBVIE-13X-087-1133239-00

PATIENT
  Age: 76 Year
  Sex: Male

DRUGS (3)
  1. LIPACREON [Suspect]
     Indication: PANCREATIC INSUFFICIENCY
     Route: 048
     Dates: start: 20130215
  2. DAIKENTYUTO [Concomitant]
     Indication: PANCREATIC INSUFFICIENCY
     Route: 048
  3. INSULIN GLARGINE [Concomitant]
     Indication: PRODUCT USED FOR UNKNOWN INDICATION
     Dates: start: 20130219

REACTIONS (2)
  - Urinary tract infection [Recovered/Resolved]
  - C-reactive protein increased [Unknown]
